FAERS Safety Report 7628449-4 (Version None)
Quarter: 2011Q3

REPORT INFORMATION
  Report Type: 
  Country: None (occurrence: None)
  Receive Date: 20110711
  Receipt Date: 20110627
  Transmission Date: 20111222
  Serious: Yes (Other)
  Sender: FDA-Public Use
  Company Number: 2011029059

PATIENT
  Age: 9 Year
  Sex: Female
  Weight: 33.793 kg

DRUGS (21)
  1. LORAZEPAM [Concomitant]
  2. CERON (CERONAPRIL) [Concomitant]
  3. NEURONTIN [Concomitant]
  4. PHENOBARBITAL TAB [Concomitant]
  5. ROXICET [Concomitant]
  6. NEXIUM [Concomitant]
  7. DIAZEPAM [Concomitant]
  8. CETIRIZINE HCL [Concomitant]
  9. DIASTAT (DIASTAT /01384601/) [Concomitant]
  10. DIMETAPP (DIMETAPP /00127601/) [Concomitant]
  11. SINUPRET (SINUPRET) [Concomitant]
  12. LOVENOX [Concomitant]
  13. HIZENTRA [Suspect]
     Indication: IMMUNODEFICIENCY COMMON VARIABLE
     Dosage: (5 G 1X/WEEK, 25 ML VIA 2-3 SITES OVER 1 HOUR SUBCUTANEOUS), (SUBCUTANEOUS)
     Route: 058
     Dates: start: 20110411
  14. HIZENTRA [Suspect]
     Indication: IMMUNODEFICIENCY COMMON VARIABLE
     Dosage: (5 G 1X/WEEK, 25 ML VIA 2-3 SITES OVER 1 HOUR SUBCUTANEOUS), (SUBCUTANEOUS)
     Route: 058
     Dates: start: 20110501
  15. RUFINAMIDE (RUFINAMIDE) [Concomitant]
  16. MIRALAX [Concomitant]
  17. LORTAB (CHLORPHENAMINE MALEATE) [Concomitant]
  18. KLONOPIN [Concomitant]
  19. KEPPRA [Concomitant]
  20. GLYCOPYRROLATE [Concomitant]
  21. CALCIUM (CALCIUM) [Concomitant]

REACTIONS (1)
  - OTITIS MEDIA [None]
